FAERS Safety Report 11552040 (Version 1)
Quarter: 2015Q3

REPORT INFORMATION
  Report Type: Spontaneous
  Country: US (occurrence: US)
  Receive Date: 20150903
  Receipt Date: 20150903
  Transmission Date: 20151125
  Serious: No
  Sender: FDA-Public Use
  Company Number: US-ELI_LILLY_AND_COMPANY-US201006000626

PATIENT
  Sex: Female
  Weight: 88.44 kg

DRUGS (18)
  1. HUMALOG [Suspect]
     Active Substance: INSULIN LISPRO
     Dosage: 6 U, UNK
     Dates: start: 20100112
  2. HUMALOG [Suspect]
     Active Substance: INSULIN LISPRO
     Dosage: 6 U, UNK
     Dates: start: 20100112
  3. ALENDRONATE [Concomitant]
     Active Substance: ALENDRONATE SODIUM
     Dosage: UNK, WEEKLY (1/W)
  4. HUMALOG [Suspect]
     Active Substance: INSULIN LISPRO
     Dosage: UNK, AS NEEDED
     Dates: start: 20100112
  5. NATEGLINIDE. [Concomitant]
     Active Substance: NATEGLINIDE
     Dosage: 120 MG, 3/D
  6. HUMALOG [Suspect]
     Active Substance: INSULIN LISPRO
     Indication: TYPE 2 DIABETES MELLITUS
     Dosage: UNK, AS NEEDED
     Dates: start: 20100112
  7. HUMALOG [Suspect]
     Active Substance: INSULIN LISPRO
     Dosage: 12 U, UNK
     Dates: start: 20100112
  8. METOPROLOL [Concomitant]
     Active Substance: METOPROLOL
     Dosage: 100 MG, UNK
  9. POTASSIUM [Concomitant]
     Active Substance: POTASSIUM
     Dosage: 20 MG, UNK
  10. LASIX [Concomitant]
     Active Substance: FUROSEMIDE
     Indication: NEUROPATHY PERIPHERAL
     Dosage: 80 MG, EACH MORNING
  11. JANUVIA [Concomitant]
     Active Substance: SITAGLIPTIN PHOSPHATE
     Dosage: 50 MG, DAILY (1/D)
  12. SIMVASTATIN. [Concomitant]
     Active Substance: SIMVASTATIN
     Dosage: 20 MG, EACH EVENING
  13. CORTISONE [Concomitant]
     Active Substance: CORTISONE\HYDROCORTISONE
  14. HUMALOG [Suspect]
     Active Substance: INSULIN LISPRO
     Dosage: 12 U, UNK
     Dates: start: 20100112
  15. CLONIDINE. [Concomitant]
     Active Substance: CLONIDINE
     Dosage: 0.1 MG, UNK
  16. METFORMIN [Concomitant]
     Active Substance: METFORMIN HYDROCHLORIDE
  17. LASIX [Concomitant]
     Active Substance: FUROSEMIDE
     Dosage: 80 MG, EACH EVENING
  18. GABAPENTIN. [Concomitant]
     Active Substance: GABAPENTIN
     Indication: NEUROPATHY PERIPHERAL

REACTIONS (5)
  - Blood glucose increased [Unknown]
  - Oedema peripheral [Unknown]
  - Arthritis [Unknown]
  - Peripheral vascular disorder [Unknown]
  - Osteopenia [Unknown]
